FAERS Safety Report 15963951 (Version 1)
Quarter: 2019Q1

REPORT INFORMATION
  Report Type: Spontaneous
  Country: US (occurrence: US)
  Receive Date: 20190214
  Receipt Date: 20190214
  Transmission Date: 20190417
  Serious: Yes (Hospitalization)
  Sender: FDA-Public Use
  Company Number: PHHY2019US030497

PATIENT
  Age: 71 Year
  Sex: Male

DRUGS (5)
  1. INSULIN [Concomitant]
     Active Substance: INSULIN NOS
     Indication: HYPERGLYCAEMIA
     Dosage: 326 U, (IN 24 HOURS)
     Route: 058
  2. FLUOCINONIDE. [Suspect]
     Active Substance: FLUOCINONIDE
     Indication: PSORIASIS
     Dosage: UNK UNK, BID
     Route: 061
  3. INSULIN [Concomitant]
     Active Substance: INSULIN NOS
     Dosage: 30 U, UNK
     Route: 065
  4. INSULIN [Concomitant]
     Active Substance: INSULIN NOS
     Dosage: 0.25-3 U, QH
     Route: 041
  5. INSULIN [Concomitant]
     Active Substance: INSULIN NOS
     Indication: TYPE 1 DIABETES MELLITUS
     Dosage: 73 U, QD
     Route: 065

REACTIONS (2)
  - Hyperglycaemia [Recovered/Resolved]
  - Product use in unapproved indication [Unknown]
